FAERS Safety Report 14706971 (Version 1)
Quarter: 2018Q2

REPORT INFORMATION
  Report Type: Spontaneous
  Country: FR (occurrence: FR)
  Receive Date: 20180403
  Receipt Date: 20180403
  Transmission Date: 20180711
  Serious: Yes (Other)
  Sender: FDA-Public Use
  Company Number: FR-CONCORDIA PHARMACEUTICALS INC.-E2B_00010809

PATIENT
  Age: 80 Year
  Sex: Female

DRUGS (10)
  1. SECTRAL [Concomitant]
     Active Substance: ACEBUTOLOL HYDROCHLORIDE
     Route: 065
  2. LIPANTHYL [Concomitant]
     Active Substance: FENOFIBRATE
     Route: 065
  3. SERETIDE [Concomitant]
     Active Substance: FLUTICASONE PROPIONATE\SALMETEROL XINAFOATE
     Route: 055
  4. VALIUM [Concomitant]
     Active Substance: DIAZEPAM
     Route: 065
  5. TUSSIDANE [Concomitant]
     Active Substance: DEXTROMETHORPHAN HYDROBROMIDE
     Dosage: DOSE:4 MILLIGRAM(S)/MILLILITRE
     Route: 065
  6. BETASERC [Concomitant]
     Active Substance: BETAHISTINE
     Route: 065
  7. PREDNISOLONE. [Suspect]
     Active Substance: PREDNISOLONE
     Route: 048
     Dates: start: 20180306, end: 20180306
  8. LYSANXIA [Concomitant]
     Active Substance: PRAZEPAM
     Route: 065
  9. RHINOTROPHYL [Concomitant]
     Active Substance: FRAMYCETIN\MONOETHANOLAMINE
     Dosage: DOSE:4 PUFF(S)
     Route: 065
  10. TANGANIL [Concomitant]
     Active Substance: ACETYLLEUCINE
     Route: 065

REACTIONS (2)
  - Asthenia [Unknown]
  - Heart rate increased [Unknown]

NARRATIVE: CASE EVENT DATE: 20180306
